FAERS Safety Report 7898280-3 (Version None)
Quarter: 2011Q4

REPORT INFORMATION
  Report Type: 
  Country: None (occurrence: None)
  Receive Date: 20111107
  Receipt Date: 20111103
  Transmission Date: 20120403
  Serious: Yes (Hospitalization)
  Sender: FDA-Public Use
  Company Number: FR-GLAXOSMITHKLINE-B0760308A

PATIENT
  Sex: Male

DRUGS (4)
  1. AUGMENTIN '125' [Suspect]
     Indication: HAEMOPHILUS INFECTION
     Dosage: 1UNIT THREE TIMES PER DAY
     Route: 048
     Dates: start: 20110910, end: 20110915
  2. DIGOXIN [Suspect]
     Indication: PRODUCT USED FOR UNKNOWN INDICATION
     Dosage: 1UNIT PER DAY
     Route: 048
     Dates: start: 20110914, end: 20110916
  3. CORDARONE [Suspect]
     Indication: ATRIAL FIBRILLATION
     Dosage: 200MG THREE TIMES PER DAY
     Route: 048
     Dates: start: 20110914, end: 20110920
  4. ATORVASTATIN CALCIUM [Suspect]
     Indication: PRODUCT USED FOR UNKNOWN INDICATION
     Dosage: 1UNIT PER DAY
     Route: 048
     Dates: start: 20080101, end: 20110920

REACTIONS (3)
  - HEPATITIS [None]
  - JAUNDICE [None]
  - ABDOMINAL PAIN [None]
